FAERS Safety Report 8215724-8 (Version None)
Quarter: 2012Q1

REPORT INFORMATION
  Report Type: 
  Country: None (occurrence: None)
  Receive Date: 20120316
  Receipt Date: 20120306
  Transmission Date: 20120608
  Serious: Yes (Hospitalization)
  Sender: FDA-Public Use
  Company Number: CHPA2012US001651

PATIENT
  Age: 29 Year
  Sex: Female

DRUGS (1)
  1. EXCEDRIN EXTRA STRENGTH TABLETS [Suspect]
     Indication: PAIN
     Dosage: UNK, UNK
     Route: 048
     Dates: start: 20120107

REACTIONS (8)
  - HYPERSENSITIVITY [None]
  - ARTHRALGIA [None]
  - JOINT SWELLING [None]
  - ASTHENIA [None]
  - MALAISE [None]
  - IMPAIRED WORK ABILITY [None]
  - TREMOR [None]
  - VOMITING [None]
